FAERS Safety Report 7876354-0 (Version None)
Quarter: 2011Q4

REPORT INFORMATION
  Report Type: 
  Country: None (occurrence: None)
  Receive Date: 20111031
  Receipt Date: 20111027
  Transmission Date: 20120403
  Serious: Yes (Hospitalization)
  Sender: FDA-Public Use
  Company Number: US-MERCK-1110USA04339

PATIENT
  Sex: Male

DRUGS (1)
  1. JANUMET [Suspect]
     Route: 048

REACTIONS (5)
  - NECK PAIN [None]
  - MALAISE [None]
  - RENAL DISORDER [None]
  - MUSCULOSKELETAL PAIN [None]
  - BACK PAIN [None]
